FAERS Safety Report 18868787 (Version 1)
Quarter: 2021Q1

REPORT INFORMATION
  Report Type: Spontaneous
  Country: US (occurrence: US)
  Receive Date: 20210210
  Receipt Date: 20210210
  Transmission Date: 20210420
  Serious: No
  Sender: FDA-Public Use
  Company Number: US-SA-2021SA038663

PATIENT
  Sex: Female
  Weight: 83.9 kg

DRUGS (13)
  1. NORMAL SALINE [Concomitant]
     Active Substance: SODIUM CHLORIDE
  2. STERILE WATER [Concomitant]
     Active Substance: WATER
  3. ACETAMINOPHEN. [Concomitant]
     Active Substance: ACETAMINOPHEN
  4. OMEPRAZOLE. [Concomitant]
     Active Substance: OMEPRAZOLE
  5. CELEXA [CELECOXIB] [Concomitant]
     Active Substance: CELECOXIB
  6. CARBAMAZEPINE. [Concomitant]
     Active Substance: CARBAMAZEPINE
  7. FABRAZYME [Suspect]
     Active Substance: AGALSIDASE BETA
     Indication: FABRY^S DISEASE
     Dosage: FABRAZYME 35 VIAL AND FABRAZYME 5 MG VIAL
     Route: 042
     Dates: start: 20201119
  8. VITAMINS NOS [Concomitant]
     Active Substance: VITAMINS
  9. DIPHENHYDRAMINE. [Concomitant]
     Active Substance: DIPHENHYDRAMINE
  10. LIDOCAINE. [Concomitant]
     Active Substance: LIDOCAINE
  11. ASPIRIN [ACETYLSALICYLIC ACID] [Concomitant]
     Active Substance: ASPIRIN
  12. EPINEPHRINE. [Concomitant]
     Active Substance: EPINEPHRINE
  13. BUSPIRONE [Concomitant]
     Active Substance: BUSPIRONE HYDROCHLORIDE

REACTIONS (2)
  - Nerve compression [Unknown]
  - Gallbladder disorder [Unknown]
